FAERS Safety Report 9805949 (Version 1)
Quarter: 2014Q1

REPORT INFORMATION
  Report Type: Spontaneous
  Country: US (occurrence: None)
  Receive Date: 20140108
  Receipt Date: 20140108
  Transmission Date: 20141002
  Serious: No
  Sender: FDA-Public Use
  Company Number: None

PATIENT
  Age: 72 None
  Sex: Male
  Weight: 65.6 kg

DRUGS (2)
  1. SUCCINYLCHOLINE [Suspect]
     Dates: start: 20130626, end: 20130626
  2. ROCURONIUM BROMIDE [Suspect]
     Dates: start: 20130626, end: 20130626

REACTIONS (1)
  - Angioedema [None]
